FAERS Safety Report 14477063 (Version 1)
Quarter: 2018Q1

REPORT INFORMATION
  Report Type: Report from Study
  Country: US (occurrence: US)
  Receive Date: 20180201
  Receipt Date: 20180201
  Transmission Date: 20180509
  Serious: No
  Sender: FDA-Public Use
  Company Number: US-EXELIXIS-CABO-17008834

PATIENT
  Sex: Male

DRUGS (17)
  1. ATORVASTATIN [Concomitant]
     Active Substance: ATORVASTATIN
  2. WARFARIN [Concomitant]
     Active Substance: WARFARIN
  3. AMBIEN [Concomitant]
     Active Substance: ZOLPIDEM TARTRATE
  4. FENOFIBRATE. [Concomitant]
     Active Substance: FENOFIBRATE
  5. DIPHENOXYLATE [Concomitant]
     Active Substance: DIPHENOXYLATE
  6. PRILOSEC [Concomitant]
     Active Substance: OMEPRAZOLE MAGNESIUM
  7. CLARITIN [Concomitant]
     Active Substance: LORATADINE
  8. VITAMINS [Concomitant]
     Active Substance: VITAMINS
  9. ASPIRIN. [Concomitant]
     Active Substance: ASPIRIN
  10. HYDROCODONE [Concomitant]
     Active Substance: HYDROCODONE
  11. NIACIN. [Concomitant]
     Active Substance: NIACIN
  12. COMETRIQ [Suspect]
     Active Substance: CABOZANTINIB S-MALATE
     Indication: BONE CANCER
     Dosage: 60 MG, QOD 3 WEEKS ON, 7 DAYS OFF
     Route: 048
     Dates: start: 201606
  13. LEVOTHYROXINE. [Concomitant]
     Active Substance: LEVOTHYROXINE
  14. COMETRIQ [Suspect]
     Active Substance: CABOZANTINIB S-MALATE
     Indication: THYROID CANCER
     Dosage: 140 MG, QD
     Route: 048
     Dates: start: 20140905, end: 20140919
  15. CLONAZEPAM. [Concomitant]
     Active Substance: CLONAZEPAM
  16. LOSARTAN. [Concomitant]
     Active Substance: LOSARTAN
  17. CALCIUM D [Concomitant]
     Active Substance: CALCIUM\VITAMIN D

REACTIONS (2)
  - Feeding disorder [Unknown]
  - Oral pain [Unknown]
